FAERS Safety Report 6396800-1 (Version None)
Quarter: 2009Q4

REPORT INFORMATION
  Report Type: 
  Country: None (occurrence: None)
  Receive Date: 20091012
  Receipt Date: 20090807
  Transmission Date: 20100525
  Serious: No
  Sender: FDA-Public Use
  Company Number: US-ASTRAZENECA-2009SE07455

PATIENT
  Sex: Female

DRUGS (1)
  1. SYMBICORT PMID [Suspect]
     Route: 055

REACTIONS (1)
  - LIP BLISTER [None]
